FAERS Safety Report 19420017 (Version 3)
Quarter: 2021Q2

REPORT INFORMATION
  Report Type: Report from Study
  Country: PE (occurrence: PE)
  Receive Date: 20210615
  Receipt Date: 20210622
  Transmission Date: 20210717
  Serious: Yes (Death, Hospitalization)
  Sender: FDA-Public Use
  Company Number: NVSC2021PE131279

PATIENT
  Age: 66 Year
  Sex: Female

DRUGS (1)
  1. REVOLADE [Suspect]
     Active Substance: ELTROMBOPAG OLAMINE
     Indication: IMMUNE THROMBOCYTOPENIA
     Dosage: 50 MG, QD
     Route: 048
     Dates: start: 20210104, end: 20210617

REACTIONS (3)
  - COVID-19 [Fatal]
  - Oxygen saturation decreased [Unknown]
  - Agitation [Unknown]

NARRATIVE: CASE EVENT DATE: 20210525
